FAERS Safety Report 4650030-X (Version None)
Quarter: 2005Q2

REPORT INFORMATION
  Report Type: 
  Country: None (occurrence: None)
  Receive Date: 20050502
  Receipt Date: 20050413
  Transmission Date: 20051028
  Serious: Yes (Hospitalization)
  Sender: FDA-Public Use
  Company Number: PHBS2005JP05375

PATIENT
  Age: 73 Year
  Sex: Female

DRUGS (4)
  1. DERMOVATE [Suspect]
     Indication: ERYTHEMA
     Dosage: 1 DF/DAY
     Route: 061
  2. CLOBETASOL PROPIONATE [Suspect]
     Indication: ERYTHEMA
     Dosage: 0.8 MG/DAY
     Route: 061
  3. DRENISON [Suspect]
     Indication: ERYTHEMA
     Dosage: 0.3 MG/DAY
     Route: 061
  4. DICLOFENAC SODIUM [Suspect]
     Indication: POST PROCEDURAL PAIN
     Dosage: 25 MG/DAY
     Route: 054

REACTIONS (3)
  - HYPOTENSION [None]
  - LOSS OF CONSCIOUSNESS [None]
  - SHOCK [None]
